FAERS Safety Report 13811525 (Version 1)
Quarter: 2017Q3

REPORT INFORMATION
  Report Type: Spontaneous
  Country: US (occurrence: US)
  Receive Date: 20170728
  Receipt Date: 20170728
  Transmission Date: 20171127
  Serious: Yes (Other)
  Sender: FDA-Public Use
  Company Number: US-ROCHE-1071805

PATIENT
  Sex: Female

DRUGS (1)
  1. BONIVA [Suspect]
     Active Substance: IBANDRONATE SODIUM
     Indication: OSTEOPOROSIS
     Route: 042

REACTIONS (5)
  - Ear pain [Not Recovered/Not Resolved]
  - Osteonecrosis of jaw [Unknown]
  - Osteoporosis [Not Recovered/Not Resolved]
  - Pyrexia [Recovered/Resolved]
  - Pain in jaw [Not Recovered/Not Resolved]
